FAERS Safety Report 17069762 (Version 1)
Quarter: 2019Q4

REPORT INFORMATION
  Report Type: Spontaneous
  Country: IR (occurrence: IR)
  Receive Date: 20191125
  Receipt Date: 20191125
  Transmission Date: 20200122
  Serious: Yes (Hospitalization, Other)
  Sender: FDA-Public Use
  Company Number: IR-ALKEM LABORATORIES LIMITED-IR-ALKEM-2019-10011

PATIENT
  Age: 34 Year
  Sex: Male

DRUGS (1)
  1. METHADONE HYDROCHLORIDE. [Suspect]
     Active Substance: METHADONE HYDROCHLORIDE
     Indication: SUICIDE ATTEMPT
     Dosage: 40 MILLIGRAM
     Route: 048

REACTIONS (8)
  - Respiratory acidosis [Unknown]
  - Overdose [Unknown]
  - Toxicity to various agents [Unknown]
  - Rhabdomyolysis [Unknown]
  - Depressed level of consciousness [Unknown]
  - Metabolic acidosis [Unknown]
  - Acute kidney injury [Unknown]
  - Deafness neurosensory [Not Recovered/Not Resolved]
